FAERS Safety Report 19871182 (Version 4)
Quarter: 2021Q4

REPORT INFORMATION
  Report Type: Spontaneous
  Country: JP (occurrence: JP)
  Receive Date: 20210923
  Receipt Date: 20211015
  Transmission Date: 20220303
  Serious: Yes (Hospitalization, Other)
  Sender: FDA-Public Use
  Company Number: JP-AMGEN-JPNSP2021144946

PATIENT
  Age: 80 Year
  Sex: Female

DRUGS (2)
  1. EVENITY [Suspect]
     Active Substance: ROMOSOZUMAB-AQQG
     Indication: Osteoporosis
     Dosage: 210 MILLIGRAM
     Route: 058
     Dates: start: 20210817
  2. OXYGEN [Concomitant]
     Active Substance: OXYGEN
     Indication: Respiratory disorder
     Dosage: UNK

REACTIONS (4)
  - Respiratory disorder [Not Recovered/Not Resolved]
  - Altered state of consciousness [Recovering/Resolving]
  - Hypoglycaemia [Unknown]
  - General physical health deterioration [Unknown]

NARRATIVE: CASE EVENT DATE: 20210912
